FAERS Safety Report 10601122 (Version 1)
Quarter: 2014Q4

REPORT INFORMATION
  Report Type: Report from Study
  Country: US (occurrence: US)
  Receive Date: 20141124
  Receipt Date: 20141124
  Transmission Date: 20150529
  Serious: Yes (Other)
  Sender: FDA-Public Use
  Company Number: PHEH2014US023205

PATIENT
  Sex: Male

DRUGS (6)
  1. AFINITOR [Suspect]
     Active Substance: EVEROLIMUS
     Indication: OFF LABEL USE
  2. TEGRETOL [Suspect]
     Active Substance: CARBAMAZEPINE
     Dosage: 5 DF, QD
     Route: 065
     Dates: start: 201409
  3. TEGRETOL [Suspect]
     Active Substance: CARBAMAZEPINE
     Dosage: 4 DF, QD
  4. KEPPRA [Concomitant]
     Active Substance: LEVETIRACETAM
     Indication: PRODUCT USED FOR UNKNOWN INDICATION
     Route: 065
  5. AFINITOR [Suspect]
     Active Substance: EVEROLIMUS
     Indication: BRAIN NEOPLASM BENIGN
     Dosage: 7.5 MG, QD
     Route: 048
     Dates: start: 20140719
  6. TEGRETOL [Suspect]
     Active Substance: CARBAMAZEPINE
     Indication: PRODUCT USED FOR UNKNOWN INDICATION
     Dosage: UNK
     Route: 065

REACTIONS (1)
  - Loss of consciousness [Unknown]
